FAERS Safety Report 26101838 (Version 1)
Quarter: 2025Q4

REPORT INFORMATION
  Report Type: Spontaneous
  Country: US (occurrence: US)
  Receive Date: 20251128
  Receipt Date: 20251128
  Transmission Date: 20260118
  Serious: Yes (Hospitalization)
  Sender: MERCK SHARP & DOHME LLC
  Company Number: US-009507513-2352550

PATIENT
  Age: 67 Year
  Sex: Female

DRUGS (6)
  1. PEMBROLIZUMAB [Suspect]
     Active Substance: PEMBROLIZUMAB
     Indication: Triple negative breast cancer
  2. PEMBROLIZUMAB [Suspect]
     Active Substance: PEMBROLIZUMAB
     Indication: Triple negative breast cancer
     Dates: start: 202403, end: 202409
  3. CARBOPLATIN [Concomitant]
     Active Substance: CARBOPLATIN
  4. PACLITAXEL [Concomitant]
     Active Substance: PACLITAXEL
  5. DOXORUBICIN [Concomitant]
     Active Substance: DOXORUBICIN
  6. CYCLOPHOSPHAMIDE [Concomitant]
     Active Substance: CYCLOPHOSPHAMIDE

REACTIONS (2)
  - Immune-mediated myocarditis [Recovered/Resolved]
  - Immune-mediated myositis [Recovered/Resolved]
